FAERS Safety Report 7998263-9 (Version None)
Quarter: 2011Q4

REPORT INFORMATION
  Report Type: 
  Country: None (occurrence: None)
  Receive Date: 20111221
  Receipt Date: 20110601
  Transmission Date: 20120403
  Serious: No
  Sender: FDA-Public Use
  Company Number: US-GLAXOSMITHKLINE-A0929873A

PATIENT
  Age: 64 Year
  Sex: Male

DRUGS (2)
  1. LOVAZA [Suspect]
     Indication: PRODUCT USED FOR UNKNOWN INDICATION
     Dosage: 4G PER DAY
     Route: 048
     Dates: start: 20101201, end: 20110501
  2. VITAMIN TAB [Concomitant]

REACTIONS (1)
  - DIARRHOEA [None]
